FAERS Safety Report 5713801-4 (Version None)
Quarter: 2008Q2

REPORT INFORMATION
  Report Type: 
  Country: None (occurrence: None)
  Receive Date: 20080421
  Receipt Date: 20080407
  Transmission Date: 20081010
  Serious: Yes (Hospitalization)
  Sender: FDA-Public Use
  Company Number: 78341

PATIENT
  Sex: Female

DRUGS (2)
  1. PSEUDOEPHEDRINE HCL [Suspect]
     Dosage: 10 TABLETS X1 ORAL
     Route: 048
     Dates: start: 20080406, end: 20080406
  2. ONE SOURCE PRENATAL MULTIVITAMIN/ PERRIGO COMPANY [Suspect]
     Dosage: 270 TABLETS X1 ORAL
     Route: 048
     Dates: start: 20080406, end: 20080406

REACTIONS (3)
  - HYPERCHLORHYDRIA [None]
  - INCORRECT DOSE ADMINISTERED [None]
  - VOMITING [None]
